FAERS Safety Report 7398032-7 (Version None)
Quarter: 2011Q2

REPORT INFORMATION
  Report Type: 
  Country: None (occurrence: None)
  Receive Date: 20110406
  Receipt Date: 20110330
  Transmission Date: 20111010
  Serious: Yes (Other)
  Sender: FDA-Public Use
  Company Number: FR-PFIZER INC-2011070324

PATIENT
  Age: 36 Year
  Sex: Female

DRUGS (2)
  1. TRIPHASIL-21 [Suspect]
     Indication: ORAL CONTRACEPTION
     Dosage: 1 DF, UNK
     Route: 048
  2. COPAXONE [Suspect]
     Indication: MULTIPLE SCLEROSIS
     Dosage: 1 DF, UNK
     Route: 058
     Dates: start: 20100830, end: 20101125

REACTIONS (1)
  - CYTOLYTIC HEPATITIS [None]
